FAERS Safety Report 6297300-X (Version None)
Quarter: 2009Q3

REPORT INFORMATION
  Report Type: 
  Country: None (occurrence: None)
  Receive Date: 20090805
  Receipt Date: 20090723
  Transmission Date: 20100115
  Serious: Yes (Hospitalization, Other)
  Sender: FDA-Public Use
  Company Number: CO-PFIZER INC-2009246866

PATIENT

DRUGS (1)
  1. CHAMPIX [Suspect]
     Indication: SMOKING CESSATION THERAPY
     Dosage: 1 MG, 2X/DAY
     Route: 048
     Dates: start: 20090701, end: 20090701

REACTIONS (4)
  - AGGRESSION [None]
  - DELIRIUM [None]
  - DELUSIONAL DISORDER, PERSECUTORY TYPE [None]
  - IRRITABILITY [None]
